FAERS Safety Report 20350524 (Version 3)
Quarter: 2022Q1

REPORT INFORMATION
  Report Type: Spontaneous
  Country: IT (occurrence: IT)
  Receive Date: 20220119
  Receipt Date: 20220223
  Transmission Date: 20220423
  Serious: Yes (Life-Threatening)
  Sender: FDA-Public Use
  Company Number: None

PATIENT
  Age: 29 Year
  Sex: Male
  Weight: 80 kg

DRUGS (1)
  1. AZITHROMYCIN [Suspect]
     Active Substance: AZITHROMYCIN
     Dosage: UNK

REACTIONS (8)
  - Gastrointestinal pain [Unknown]
  - Nausea [Unknown]
  - Vomiting [Unknown]
  - Muscle spasms [Unknown]
  - Muscle contractions involuntary [Unknown]
  - Abdominal pain upper [Unknown]
  - Asphyxia [Unknown]
  - Suffocation feeling [Unknown]

NARRATIVE: CASE EVENT DATE: 20220105
